FAERS Safety Report 6512307-2 (Version None)
Quarter: 2009Q4

REPORT INFORMATION
  Report Type: 
  Country: None (occurrence: None)
  Receive Date: 20091222
  Receipt Date: 20090716
  Transmission Date: 20100525
  Serious: No
  Sender: FDA-Public Use
  Company Number: US-ASTRAZENECA-2009UW20156

PATIENT
  Age: 58 Year
  Sex: Female
  Weight: 78.9 kg

DRUGS (3)
  1. CRESTOR [Suspect]
     Indication: BLOOD CHOLESTEROL INCREASED
     Route: 048
     Dates: start: 20090601
  2. TEGRETOL [Concomitant]
  3. LEVOXYL [Concomitant]

REACTIONS (1)
  - PAIN [None]
